FAERS Safety Report 5677310-3 (Version None)
Quarter: 2008Q1

REPORT INFORMATION
  Report Type: 
  Country: None (occurrence: None)
  Receive Date: 20080324
  Receipt Date: 20080314
  Transmission Date: 20080703
  Serious: No
  Sender: FDA-Public Use
  Company Number: JP-MERCK-0802USA06266

PATIENT
  Age: 44 Year
  Sex: Male

DRUGS (2)
  1. ZETIA [Suspect]
     Indication: HYPERLIPIDAEMIA
     Route: 048
     Dates: start: 20070725, end: 20070905
  2. CANDESARTAN CILEXETIL [Concomitant]
     Route: 065
     Dates: start: 20070124, end: 20080214

REACTIONS (1)
  - LIVER DISORDER [None]
